FAERS Safety Report 8797089 (Version 2)
Quarter: 2015Q1

REPORT INFORMATION
  Report Type: Report from Study
  Country: US (occurrence: US)
  Receive Date: 20120919
  Receipt Date: 20150305
  Transmission Date: 20150721
  Serious: Yes (Death)
  Sender: FDA-Public Use
  Company Number: US-ROCHE-1103566

PATIENT
  Age: 53 Year
  Sex: Female

DRUGS (13)
  1. ARANESP [Concomitant]
     Active Substance: DARBEPOETIN ALFA
     Dosage: DOSE RECEIVED ON 17/DEC/2004, 05/JAN/2005
     Route: 065
  2. LEVONOX (LEVOFLOXACIN) [Concomitant]
     Active Substance: LEVOFLOXACIN
     Dosage: 27/DEC/2004 TO 30/DEC/2004
     Route: 065
  3. ATROPINE [Concomitant]
     Active Substance: ATROPINE
     Dosage: 05/JAN/2005
     Route: 065
  4. KYTRIL [Concomitant]
     Active Substance: GRANISETRON HYDROCHLORIDE
     Dosage: DOSE RECEIVED ON 19/NOV/2004,07/DEC/2004, 21/DEC/2004, 14/DEC/2004
     Route: 042
  5. CAMPTOSAR [Concomitant]
     Active Substance: IRINOTECAN HYDROCHLORIDE
     Dosage: 05/JAN/2005
     Route: 042
  6. AVASTIN [Suspect]
     Active Substance: BEVACIZUMAB
     Indication: SMALL INTESTINE CARCINOMA
     Dosage: SUBSEQUENT TEHRAPIES RECEIVED ON 19/NOV/2004, 07/DEC/2004, 21/DEC/2004 AND 04/JAN/2005
     Route: 042
     Dates: start: 20041105
  7. 5-FLUOROURACIL [Concomitant]
     Active Substance: FLUOROURACIL
     Route: 042
  8. ERBITUX [Concomitant]
     Active Substance: CETUXIMAB
  9. LEUCOVORIN [Concomitant]
     Active Substance: LEUCOVORIN
     Dosage: DOSE RECEIVED ON 05/NOV/2004, 12/NOV/2004 AND 19/NOV/2004
     Route: 042
  10. ANZEMET [Concomitant]
     Active Substance: DOLASETRON MESYLATE
     Dosage: DOSE RECEIVED ON 05/NOV/2004, 12/NOV/2004 AND 19/NOV/2004
     Route: 065
  11. GEMZAR [Concomitant]
     Active Substance: GEMCITABINE HYDROCHLORIDE
  12. ALOXI [Concomitant]
     Active Substance: PALONOSETRON HYDROCHLORIDE
     Route: 065
  13. 5-FLUOROURACIL [Concomitant]
     Active Substance: FLUOROURACIL
     Dosage: DOSE RECEIVED ON 05/NOV/2004, 12/NOV/2004 AND 19/NOV/2004, 07/DEC/2004, 21/DEC/2004, 14/DEC/2004,  0
     Route: 042

REACTIONS (3)
  - Death [Fatal]
  - Off label use [Unknown]
  - Abdominal pain [Unknown]

NARRATIVE: CASE EVENT DATE: 20050426
